FAERS Safety Report 8812643 (Version 1)
Quarter: 2012Q4

REPORT INFORMATION
  Report Type: 
  Country: BE (occurrence: NO)
  Receive Date: 20120927
  Receipt Date: 20120927
  Transmission Date: 20130627
  Serious: Yes (Hospitalization)
  Sender: FDA-Public Use
  Company Number: PHHY2012NO082171

PATIENT
  Sex: Female

DRUGS (6)
  1. LEVOCETIRIZINE [Suspect]
     Indication: FOOD ALLERGY
     Dosage: 5 mg, UNK
     Route: 065
     Dates: start: 20031020, end: 20040428
  2. CETIRIZINE [Suspect]
     Indication: FOOD ALLERGY
     Route: 065
     Dates: start: 20030514, end: 20031019
  3. OXAZEPAM [Concomitant]
     Indication: ANXIETY
     Dates: start: 20031020, end: 20040428
  4. OXAZEPAM [Concomitant]
     Dates: start: 20030514, end: 20031019
  5. OXAZEPAM [Concomitant]
     Dates: start: 20040329, end: 20040412
  6. CIPRALEX [Concomitant]
     Indication: ANXIETY
     Route: 065
     Dates: end: 20040427

REACTIONS (15)
  - Urinary tract infection [Recovered/Resolved]
  - Weight decreased [Recovering/Resolving]
  - Feeling abnormal [Recovered/Resolved]
  - Eating disorder [Recovering/Resolving]
  - Parosmia [Recovered/Resolved]
  - Feeling hot [Recovered/Resolved]
  - Panic disorder [Recovering/Resolving]
  - Dry mouth [Recovered/Resolved]
  - Hypogeusia [Recovered/Resolved]
  - Suicidal ideation [Recovered/Resolved]
  - Disturbance in attention [Recovering/Resolving]
  - Liver disorder [Recovered/Resolved]
  - Chills [Recovered/Resolved]
  - Heart rate increased [Recovering/Resolving]
  - Fear [Recovering/Resolving]
